FAERS Safety Report 9375386 (Version 1)
Quarter: 2013Q2

REPORT INFORMATION
  Report Type: Report from Study
  Country: US (occurrence: US)
  Receive Date: 20130628
  Receipt Date: 20130628
  Transmission Date: 20140414
  Serious: Yes (Hospitalization, Other)
  Sender: FDA-Public Use
  Company Number: US-ABBOTT-13P-163-1051839-00

PATIENT
  Age: 66 Year
  Sex: Female
  Weight: 79.45 kg

DRUGS (24)
  1. HUMIRA PEN [Suspect]
     Indication: CROHN^S DISEASE
     Dates: start: 2009
  2. LASIX [Concomitant]
     Indication: PRODUCT USED FOR UNKNOWN INDICATION
  3. OMEPRAZOLE [Concomitant]
     Indication: PRODUCT USED FOR UNKNOWN INDICATION
  4. XANAX [Concomitant]
     Indication: PRODUCT USED FOR UNKNOWN INDICATION
  5. FERROUS SULPHATE [Concomitant]
     Indication: PRODUCT USED FOR UNKNOWN INDICATION
  6. ADRENAL [Concomitant]
     Indication: PRODUCT USED FOR UNKNOWN INDICATION
     Dosage: 2 EVERY MORNING
  7. HYDROCODONE [Concomitant]
     Indication: PRODUCT USED FOR UNKNOWN INDICATION
     Dosage: 10/325MG: 1 EVERY 6-8 HOURS PRN
  8. VIT D [Concomitant]
     Indication: PRODUCT USED FOR UNKNOWN INDICATION
  9. ARMOUR THYROID [Concomitant]
     Indication: PRODUCT USED FOR UNKNOWN INDICATION
  10. DHEA [Concomitant]
     Indication: PRODUCT USED FOR UNKNOWN INDICATION
     Dosage: 25 MG: 1/2  IN AM
  11. ATENOLOL [Concomitant]
     Indication: PRODUCT USED FOR UNKNOWN INDICATION
     Dosage: 50 MG AT BEDTIME
  12. KLOR-CON [Concomitant]
     Indication: PRODUCT USED FOR UNKNOWN INDICATION
  13. PRAVASTATIN [Concomitant]
     Indication: PRODUCT USED FOR UNKNOWN INDICATION
     Dosage: 10 MG AT BEDTIME
  14. ONE SOURCE [Concomitant]
     Indication: PRODUCT USED FOR UNKNOWN INDICATION
  15. VIT B6 [Concomitant]
     Indication: PRODUCT USED FOR UNKNOWN INDICATION
  16. ASA [Concomitant]
     Indication: PRODUCT USED FOR UNKNOWN INDICATION
  17. L-LYSINE [Concomitant]
     Indication: PRODUCT USED FOR UNKNOWN INDICATION
     Dosage: 500 MG EVERY AM
  18. CLARITIN [Concomitant]
     Indication: PRODUCT USED FOR UNKNOWN INDICATION
  19. B 12 [Concomitant]
     Indication: PRODUCT USED FOR UNKNOWN INDICATION
  20. MELATONIN [Concomitant]
     Indication: PRODUCT USED FOR UNKNOWN INDICATION
     Dosage: 3 MG: 1/2 AT BEDTIME
  21. RESTORIL [Concomitant]
     Indication: PRODUCT USED FOR UNKNOWN INDICATION
     Dosage: 30 MG AT BEDTIME, PRN
  22. LOMOTIL [Concomitant]
     Indication: PRODUCT USED FOR UNKNOWN INDICATION
  23. HRT 0.2 % CREAM [Concomitant]
     Indication: PRODUCT USED FOR UNKNOWN INDICATION
     Dosage: 30 GM TEST, 15 MI BEST 0.6/PROG 50
     Route: 061
  24. SALINE [Concomitant]
     Indication: PRODUCT USED FOR UNKNOWN INDICATION
     Dates: start: 20130504, end: 20130506

REACTIONS (13)
  - Wound dehiscence [Recovering/Resolving]
  - Crohn^s disease [Recovered/Resolved]
  - Crohn^s disease [Not Recovered/Not Resolved]
  - Nausea [Recovering/Resolving]
  - Dehydration [Unknown]
  - Crohn^s disease [Unknown]
  - Incision site erythema [Recovering/Resolving]
  - Staphylococcal infection [Unknown]
  - Impaired healing [Recovering/Resolving]
  - Procedural pain [Recovering/Resolving]
  - Weight decreased [Unknown]
  - Decreased appetite [Recovered/Resolved]
  - Diarrhoea [Unknown]
